FAERS Safety Report 23445524 (Version 1)
Quarter: 2024Q1

REPORT INFORMATION
  Report Type: Spontaneous
  Country: SY (occurrence: SY)
  Receive Date: 20240126
  Receipt Date: 20240126
  Transmission Date: 20240409
  Serious: Yes (Other)
  Sender: FDA-Public Use
  Company Number: SY-JNJFOC-20240151463

PATIENT

DRUGS (3)
  1. REMICADE [Suspect]
     Active Substance: INFLIXIMAB
     Indication: Inflammatory bowel disease
     Route: 041
  2. ADALIMUMAB [Suspect]
     Active Substance: ADALIMUMAB\ISOPROPYL ALCOHOL
     Indication: Inflammatory bowel disease
     Route: 065
  3. CERTOLIZUMAB [Suspect]
     Active Substance: CERTOLIZUMAB
     Indication: Inflammatory bowel disease
     Route: 065

REACTIONS (7)
  - Lewis-Sumner syndrome [Unknown]
  - Miller Fisher syndrome [Unknown]
  - Acute disseminated encephalomyelitis [Unknown]
  - Myelitis transverse [Unknown]
  - Multiple sclerosis [Unknown]
  - Guillain-Barre syndrome [Unknown]
  - Optic neuritis [Unknown]
